FAERS Safety Report 17437096 (Version 1)
Quarter: 2020Q1

REPORT INFORMATION
  Report Type: Spontaneous
  Country: SE (occurrence: SE)
  Receive Date: 20200219
  Receipt Date: 20200219
  Transmission Date: 20200409
  Serious: Yes (Other)
  Sender: FDA-Public Use
  Company Number: SE-MYLANLABS-2020M1018051

PATIENT
  Age: 67 Year
  Sex: Female

DRUGS (8)
  1. CALCICHEW D3 [Concomitant]
     Active Substance: CALCIUM\CHOLECALCIFEROL
     Dosage: UNK
     Dates: start: 20190124
  2. ZOLEDRONIC ACID [Concomitant]
     Active Substance: ZOLEDRONIC ACID
     Dosage: UNK
     Dates: start: 20180821
  3. IBUMETIN [Concomitant]
     Active Substance: IBUPROFEN
     Dosage: UNK UNK, PRN
     Dates: start: 20181203
  4. LETROZOLE. [Concomitant]
     Active Substance: LETROZOLE
     Dosage: UNK
     Dates: start: 20181210
  5. ACETYLCYSTEINE. [Concomitant]
     Active Substance: ACETYLCYSTEINE
     Dosage: UNK UNK, PRN
     Dates: start: 20190514
  6. ALVEDON [Concomitant]
     Active Substance: ACETAMINOPHEN
     Dosage: UNK UNK, PRN
     Dates: start: 20180620
  7. OGIVRI [Suspect]
     Active Substance: TRASTUZUMAB-DKST
     Indication: PRODUCT USED FOR UNKNOWN INDICATION
     Dosage: UNK
     Route: 042
     Dates: start: 20190322, end: 20190524
  8. CORTIMYK [Concomitant]
     Dosage: UNK UNK, PRN
     Dates: start: 20190911

REACTIONS (11)
  - Arthralgia [Recovered/Resolved]
  - Vomiting [Recovered/Resolved]
  - Hypoaesthesia [Recovered/Resolved]
  - Headache [Recovered/Resolved]
  - Rhinorrhoea [Recovered/Resolved]
  - Productive cough [Recovered/Resolved]
  - Pain in extremity [Not Recovered/Not Resolved]
  - Product substitution [Recovered/Resolved]
  - Influenza like illness [Recovered/Resolved]
  - Taste disorder [Recovered/Resolved]
  - Chills [Recovered/Resolved]

NARRATIVE: CASE EVENT DATE: 2019
